FAERS Safety Report 4815463-7 (Version None)
Quarter: 2005Q4

REPORT INFORMATION
  Report Type: 
  Country: None (occurrence: None)
  Receive Date: 20051028
  Receipt Date: 20051028
  Transmission Date: 20060501
  Serious: No
  Sender: FDA-Public Use
  Company Number: None

PATIENT
  Age: 61 Year
  Sex: Male
  Weight: 99.7913 kg

DRUGS (1)
  1. GATIFLOXACIN [Suspect]
     Indication: INFECTION

REACTIONS (2)
  - BLOOD GLUCOSE DECREASED [None]
  - ORAL INTAKE REDUCED [None]
